FAERS Safety Report 14413245 (Version 1)
Quarter: 2018Q1

REPORT INFORMATION
  Report Type: Spontaneous
  Country: US (occurrence: US)
  Receive Date: 20180119
  Receipt Date: 20180119
  Transmission Date: 20180509
  Serious: Yes (Hospitalization)
  Sender: FDA-Public Use
  Company Number: None

PATIENT
  Age: 77 Year
  Sex: Female
  Weight: 125.5 kg

DRUGS (12)
  1. ASA [Concomitant]
     Active Substance: ASPIRIN
  2. ALPHAGAN P [Concomitant]
     Active Substance: BRIMONIDINE TARTRATE
  3. HEPARIN [Suspect]
     Active Substance: HEPARIN SODIUM
     Indication: ATRIAL FIBRILLATION
     Dosage: 13.78ML/HR  CON^T IV?RECENT
     Route: 042
  4. COLACE [Concomitant]
     Active Substance: DOCUSATE SODIUM
  5. APAP [Concomitant]
     Active Substance: ACETAMINOPHEN
  6. BUMEX [Concomitant]
     Active Substance: BUMETANIDE
  7. XALATAN [Concomitant]
     Active Substance: LATANOPROST
  8. MYCOSTATIN [Concomitant]
     Active Substance: NYSTATIN
  9. WARFARIN [Suspect]
     Active Substance: WARFARIN
     Indication: ATRIAL FIBRILLATION
     Dosage: CHRONIC
     Route: 048
  10. TRUSOPT [Concomitant]
     Active Substance: DORZOLAMIDE HYDROCHLORIDE
  11. LOPRESSOR [Concomitant]
     Active Substance: METOPROLOL TARTRATE
  12. DIFLUCAN [Concomitant]
     Active Substance: FLUCONAZOLE

REACTIONS (6)
  - Gastrointestinal haemorrhage [None]
  - Acute kidney injury [None]
  - Anticoagulation drug level below therapeutic [None]
  - Cardiac failure congestive [None]
  - Therapy cessation [None]
  - Gastrointestinal arteriovenous malformation [None]

NARRATIVE: CASE EVENT DATE: 20170818
